FAERS Safety Report 8199397-9 (Version None)
Quarter: 2012Q1

REPORT INFORMATION
  Report Type: 
  Country: None (occurrence: None)
  Receive Date: 20120309
  Receipt Date: 20120229
  Transmission Date: 20120608
  Serious: Yes (Disabling)
  Sender: FDA-Public Use
  Company Number: BR-ASTRAZENECA-2011SE33357

PATIENT
  Age: 33 Year
  Sex: Male
  Weight: 110 kg

DRUGS (17)
  1. CLONAZEPAM [Concomitant]
     Indication: ANXIETY
     Route: 048
  2. SEROQUEL [Suspect]
     Indication: DEPRESSION
     Route: 048
     Dates: start: 20110501, end: 20110101
  3. SEROQUEL [Suspect]
     Dosage: GENERIC QUETIAPINE -EMS, 25 MG DAILY
     Route: 048
     Dates: start: 20110501, end: 20110101
  4. DIAZEPAM [Concomitant]
     Indication: DEPRESSION
     Route: 048
  5. LIORAM [Concomitant]
  6. SEROQUEL [Suspect]
     Dosage: GENERIC QUETIAPINE -EMS, 25 MG DAILY
     Route: 048
     Dates: start: 20110501, end: 20110101
  7. PANTOPRAZOLE [Concomitant]
     Indication: PROPHYLAXIS AGAINST GASTROINTESTINAL ULCER
     Route: 048
  8. APRAZOLAM [Concomitant]
  9. SEROQUEL [Suspect]
     Indication: ANXIETY
     Route: 048
     Dates: start: 20110501, end: 20110101
  10. MAXAPRAN [Concomitant]
  11. DEPAKOTE ER [Concomitant]
     Indication: DEPRESSION
     Route: 048
  12. DIAZEPAM [Concomitant]
     Indication: ANXIETY
     Route: 048
  13. SEROQUEL [Suspect]
     Route: 048
  14. SEROQUEL [Suspect]
     Route: 048
  15. CLONAZEPAM [Concomitant]
     Indication: DEPRESSION
     Route: 048
  16. DEPAKOTE ER [Concomitant]
     Indication: ANXIETY
     Route: 048
  17. DAFORIN [Concomitant]

REACTIONS (7)
  - AKATHISIA [None]
  - ROAD TRAFFIC ACCIDENT [None]
  - URINARY RETENTION [None]
  - NERVOUSNESS [None]
  - FRACTURED COCCYX [None]
  - RESTLESSNESS [None]
  - DRUG PRESCRIBING ERROR [None]
